FAERS Safety Report 8415781-X (Version None)
Quarter: 2012Q2

REPORT INFORMATION
  Report Type: 
  Country: None (occurrence: None)
  Receive Date: 20120606
  Receipt Date: 20120531
  Transmission Date: 20120825
  Serious: Yes (Other)
  Sender: FDA-Public Use
  Company Number: US-JNJFOC-20120601213

PATIENT
  Sex: Female

DRUGS (4)
  1. DURAGESIC-100 [Suspect]
     Route: 062
     Dates: start: 20080101
  2. DURAGESIC-100 [Suspect]
     Indication: NEUROPATHY PERIPHERAL
     Route: 062
     Dates: end: 20080101
  3. FISH OIL [Concomitant]
     Route: 048
  4. DURAGESIC-100 [Suspect]
     Route: 062

REACTIONS (9)
  - NEUROPATHY PERIPHERAL [None]
  - DIABETES MELLITUS [None]
  - APHASIA [None]
  - BLOOD PRESSURE ABNORMAL [None]
  - ABNORMAL LOSS OF WEIGHT [None]
  - PAIN [None]
  - WRONG TECHNIQUE IN DRUG USAGE PROCESS [None]
  - PRODUCT QUALITY ISSUE [None]
  - BLOOD CHOLESTEROL ABNORMAL [None]
